FAERS Safety Report 7794706-4 (Version None)
Quarter: 2011Q4

REPORT INFORMATION
  Report Type: 
  Country: None (occurrence: None)
  Receive Date: 20111003
  Receipt Date: 20111003
  Transmission Date: 20120403
  Serious: Yes (Hospitalization)
  Sender: FDA-Public Use
  Company Number: None

PATIENT
  Age: 81 Year
  Sex: Male
  Weight: 73.8 kg

DRUGS (1)
  1. AMIODARONE HCL [Suspect]
     Dates: start: 20110817

REACTIONS (2)
  - VOMITING [None]
  - NAUSEA [None]
